FAERS Safety Report 24523873 (Version 1)
Quarter: 2024Q4

REPORT INFORMATION
  Report Type: Spontaneous
  Country: US (occurrence: US)
  Receive Date: 20241018
  Receipt Date: 20241018
  Transmission Date: 20250114
  Serious: No
  Sender: MILLICENT HOLDINGS
  Company Number: US-Millicent Holdings Ltd.-MILL20241202

PATIENT
  Age: 63 Year
  Sex: Female

DRUGS (2)
  1. INTRAROSA [Suspect]
     Active Substance: PRASTERONE
     Indication: Menopause
     Dosage: 6.5 MG
     Route: 067
     Dates: start: 20241004
  2. INTRAROSA [Suspect]
     Active Substance: PRASTERONE
     Indication: Hormone replacement therapy
     Dosage: 6.5 MG
     Route: 067
     Dates: start: 202407

REACTIONS (7)
  - Underdose [Not Recovered/Not Resolved]
  - Poor quality product administered [Not Recovered/Not Resolved]
  - Off label use [Not Recovered/Not Resolved]
  - Product physical issue [Not Recovered/Not Resolved]
  - Product packaging difficult to open [Not Recovered/Not Resolved]
  - Product packaging issue [Not Recovered/Not Resolved]
  - Wrong technique in product usage process [Not Recovered/Not Resolved]

NARRATIVE: CASE EVENT DATE: 20240701
